FAERS Safety Report 6274552-3 (Version None)
Quarter: 2009Q3

REPORT INFORMATION
  Report Type: 
  Country: None (occurrence: None)
  Receive Date: 20090720
  Receipt Date: 20090710
  Transmission Date: 20100115
  Serious: Yes (Death, Hospitalization)
  Sender: FDA-Public Use
  Company Number: US-AVENTIS-200914576US

PATIENT
  Sex: Female

DRUGS (10)
  1. KETEK [Suspect]
     Indication: BRONCHITIS
     Dosage: DOSE: TWO AT NIGHT
     Dates: start: 20051028, end: 20051106
  2. KETEK [Suspect]
     Dates: start: 20060323, end: 20060329
  3. PROZAC [Concomitant]
     Dosage: DOSE: UNK
  4. COZAAR [Concomitant]
     Dosage: DOSE: UNK
  5. NAMENDA [Concomitant]
     Dosage: DOSE: UNK
  6. ZITHROMAX [Concomitant]
     Dosage: DOSE: UNK
     Dates: start: 20050101, end: 20050101
  7. ZITHROMAX [Concomitant]
     Dosage: DOSE: UNK
     Dates: start: 20050101, end: 20050101
  8. FLONASE [Concomitant]
     Dosage: DOSE: UNK
     Dates: start: 20050101
  9. MUCINEX DM [Concomitant]
     Dosage: DOSE: UNK
  10. LEVOTHYROXINE SODIUM [Concomitant]
     Dosage: DOSE: UNK

REACTIONS (3)
  - CHRONIC HEPATIC FAILURE [None]
  - HEPATIC CIRRHOSIS [None]
  - LIVER FUNCTION TEST ABNORMAL [None]
